FAERS Safety Report 8022575-6 (Version None)
Quarter: 2012Q1

REPORT INFORMATION
  Report Type: 
  Country: None (occurrence: None)
  Receive Date: 20120104
  Receipt Date: 20120103
  Transmission Date: 20120608
  Serious: Yes (Hospitalization)
  Sender: FDA-Public Use
  Company Number: US-GLAXOSMITHKLINE-A0937830A

PATIENT
  Age: 67 Year
  Sex: Male
  Weight: 127.3 kg

DRUGS (5)
  1. LISINOPRIL [Concomitant]
  2. METFORMIN HCL [Concomitant]
  3. SIMVASTATIN [Concomitant]
  4. GLIPIZIDE [Concomitant]
  5. AVANDIA [Suspect]
     Indication: DIABETES MELLITUS
     Dosage: 4MG TWICE PER DAY
     Route: 048
     Dates: start: 20011201, end: 20080201

REACTIONS (3)
  - MYOCARDIAL INFARCTION [None]
  - CARDIAC FAILURE CONGESTIVE [None]
  - ISCHAEMIC CARDIOMYOPATHY [None]
